FAERS Safety Report 17422993 (Version 2)
Quarter: 2020Q1

REPORT INFORMATION
  Report Type: Spontaneous
  Country: US (occurrence: US)
  Receive Date: 20200216
  Receipt Date: 20200225
  Transmission Date: 20200409
  Serious: Yes (Other)
  Sender: FDA-Public Use
  Company Number: US-BEH-2020112933

PATIENT
  Sex: Female

DRUGS (3)
  1. HIZENTRA [Suspect]
     Active Substance: HUMAN IMMUNOGLOBULIN G
     Dosage: UNK
     Route: 065
     Dates: start: 20200104
  2. HIZENTRA [Suspect]
     Active Substance: HUMAN IMMUNOGLOBULIN G
     Dosage: UNK
     Route: 065
  3. HIZENTRA [Suspect]
     Active Substance: HUMAN IMMUNOGLOBULIN G
     Dosage: UNK
     Route: 065
     Dates: start: 20181223

REACTIONS (12)
  - Erythema [Unknown]
  - Swelling [Unknown]
  - Tremor [Unknown]
  - Hypertension [Unknown]
  - Dysarthria [Unknown]
  - Hypoaesthesia [Unknown]
  - Pruritus [Unknown]
  - Infusion site swelling [Unknown]
  - Pain [Unknown]
  - Hypoaesthesia oral [Unknown]
  - Haematoma [Unknown]
  - Urticaria [Unknown]

NARRATIVE: CASE EVENT DATE: 2018
